FAERS Safety Report 7825078-4 (Version None)
Quarter: 2011Q4

REPORT INFORMATION
  Report Type: 
  Country: None (occurrence: None)
  Receive Date: 20111019
  Receipt Date: 20110628
  Transmission Date: 20120403
  Serious: No
  Sender: FDA-Public Use
  Company Number: US-BRISTOL-MYERS SQUIBB COMPANY-15861305

PATIENT
  Age: 67 Year
  Sex: Male

DRUGS (1)
  1. AVALIDE [Suspect]
     Dosage: 1 DF = 150/12.5 MG

REACTIONS (2)
  - MEDICATION ERROR [None]
  - DYSPHAGIA [None]
